FAERS Safety Report 4569016-9 (Version None)
Quarter: 2005Q1

REPORT INFORMATION
  Report Type: 
  Country: None (occurrence: None)
  Receive Date: 20050203
  Receipt Date: 20041025
  Transmission Date: 20050727
  Serious: Yes (Other)
  Sender: FDA-Public Use
  Company Number: 200414044FR

PATIENT
  Age: 54 Year
  Sex: Female
  Weight: 67 kg

DRUGS (2)
  1. KETEK [Suspect]
     Indication: SINUSITIS
     Route: 048
     Dates: start: 20040925, end: 20040929
  2. SOLUPRED [Suspect]
     Indication: SINUSITIS
     Route: 048
     Dates: start: 20040925, end: 20040927

REACTIONS (6)
  - ANXIETY [None]
  - BRADYCARDIA [None]
  - DYSPNOEA [None]
  - PALPITATIONS [None]
  - SUPRAVENTRICULAR EXTRASYSTOLES [None]
  - VENTRICULAR EXTRASYSTOLES [None]
